FAERS Safety Report 9324977 (Version 2)
Quarter: 2013Q3

REPORT INFORMATION
  Report Type: Spontaneous
  Country: US (occurrence: US)
  Receive Date: 20130603
  Receipt Date: 20130714
  Transmission Date: 20140515
  Serious: No
  Sender: FDA-Public Use
  Company Number: US-ASTRAZENECA-2013SE35629

PATIENT
  Age: 89 Year
  Sex: Female

DRUGS (2)
  1. SYMBICORT [Suspect]
     Dosage: 160/4.5 , 2 PUFFS BID
     Route: 055
     Dates: start: 200809
  2. VENTOLIN [Concomitant]
     Indication: RESPIRATORY DISORDER
     Route: 055

REACTIONS (3)
  - Dyspnoea [Unknown]
  - Device misuse [Unknown]
  - Drug dose omission [Unknown]
